FAERS Safety Report 4656359-3 (Version None)
Quarter: 2005Q2

REPORT INFORMATION
  Report Type: 
  Country: None (occurrence: None)
  Receive Date: 20050509
  Receipt Date: 20041203
  Transmission Date: 20051028
  Serious: Yes (Hospitalization)
  Sender: FDA-Public Use
  Company Number: US-AMGEN-PRA100578

PATIENT
  Sex: Male

DRUGS (6)
  1. PEGFILGRASTIM [Suspect]
     Indication: CHEMOTHERAPY
     Route: 058
     Dates: start: 20041008, end: 20041210
  2. CYCLOPHOSPHAMIDE [Suspect]
     Route: 042
     Dates: start: 20041008
  3. DOXORUBICIN HYDROCHLORIDE [Suspect]
     Route: 042
     Dates: start: 20041008
  4. VINCRISTINE [Suspect]
     Route: 042
     Dates: start: 20041008
  5. RITUXIMAB [Suspect]
     Route: 042
     Dates: start: 20041008
  6. PREDNISONE TAB [Suspect]
     Route: 048
     Dates: start: 20041008

REACTIONS (5)
  - ACUTE MYOCARDIAL INFARCTION [None]
  - CARDIAC FAILURE CONGESTIVE [None]
  - CORONARY ARTERY OCCLUSION [None]
  - PULMONARY HYPERTENSION [None]
  - VENTRICULAR HYPOKINESIA [None]
